FAERS Safety Report 5678882-5 (Version None)
Quarter: 2008Q1

REPORT INFORMATION
  Report Type: 
  Country: None (occurrence: None)
  Receive Date: 20080325
  Receipt Date: 20080314
  Transmission Date: 20080703
  Serious: Yes (Other)
  Sender: FDA-Public Use
  Company Number: ES-JNJFOC-20080303857

PATIENT
  Age: 41 Year
  Sex: Male

DRUGS (2)
  1. INFLIXIMAB [Suspect]
     Indication: CROHN'S DISEASE
     Dosage: INDUCTION AND MAINTENANCE FOR 18 MONTHS
     Route: 042
  2. 6 MP [Concomitant]
     Dosage: 20 MONTHS

REACTIONS (1)
  - B-CELL LYMPHOMA [None]
